FAERS Safety Report 5082673-6 (Version None)
Quarter: 2006Q3

REPORT INFORMATION
  Report Type: 
  Country: None (occurrence: None)
  Receive Date: 20060817
  Receipt Date: 20060724
  Transmission Date: 20061208
  Serious: Yes (Life-Threatening)
  Sender: FDA-Public Use
  Company Number: JP-BRISTOL-MYERS SQUIBB COMPANY-13456355

PATIENT
  Age: 54 Year
  Sex: Female

DRUGS (6)
  1. TAXOL [Suspect]
     Indication: BREAST CANCER
     Route: 041
     Dates: start: 20060620, end: 20060620
  2. GASTER [Concomitant]
     Route: 048
  3. GASMOTIN [Concomitant]
     Route: 048
  4. LASIX [Concomitant]
     Route: 048
     Dates: start: 20060614, end: 20060626
  5. ALDACTONE [Concomitant]
     Route: 048
     Dates: start: 20060614, end: 20060626
  6. DAI-KENCHU-TO [Concomitant]
     Route: 048
     Dates: start: 20060619, end: 20060626

REACTIONS (2)
  - COMA HEPATIC [None]
  - HEPATIC FUNCTION ABNORMAL [None]
